FAERS Safety Report 6510354-8 (Version None)
Quarter: 2009Q4

REPORT INFORMATION
  Report Type: 
  Country: None (occurrence: None)
  Receive Date: 20091221
  Receipt Date: 20091221
  Transmission Date: 20100525
  Serious: Yes (Other)
  Sender: FDA-Public Use
  Company Number: None

PATIENT
  Age: 53 Year
  Sex: Female
  Weight: 70.3075 kg

DRUGS (1)
  1. CYMBALTA [Suspect]
     Indication: DEPRESSION
     Dosage: 60 MG PER DAY PO
     Route: 048
     Dates: start: 20070901, end: 20091101

REACTIONS (6)
  - FEELING COLD [None]
  - HEADACHE [None]
  - HOT FLUSH [None]
  - LETHARGY [None]
  - MOTION SICKNESS [None]
  - WITHDRAWAL SYNDROME [None]
